FAERS Safety Report 10940399 (Version 2)
Quarter: 2015Q2

REPORT INFORMATION
  Report Type: Spontaneous
  Country: US (occurrence: US)
  Receive Date: 20150322
  Receipt Date: 20150524
  Transmission Date: 20150821
  Serious: Yes (Other)
  Sender: FDA-Public Use
  Company Number: US-JNJFOC-20130313434

PATIENT
  Age: 56 Year
  Sex: Female

DRUGS (1)
  1. ABCIXIMAB [Suspect]
     Active Substance: ABCIXIMAB
     Indication: EMBOLISM
     Route: 042

REACTIONS (2)
  - Chest pain [Recovered/Resolved]
  - Back pain [Recovered/Resolved]
